FAERS Safety Report 6758507-8 (Version None)
Quarter: 2010Q2

REPORT INFORMATION
  Report Type: 
  Country: None (occurrence: None)
  Receive Date: 20100607
  Receipt Date: 20100528
  Transmission Date: 20101027
  Serious: Yes (Hospitalization)
  Sender: FDA-Public Use
  Company Number: B0630111A

PATIENT
  Sex: Male
  Weight: 8.2 kg

DRUGS (1)
  1. ZANTAC [Suspect]
     Route: 048
     Dates: start: 20091128

REACTIONS (10)
  - ABDOMINAL PAIN [None]
  - ASTHENIA [None]
  - DECREASED APPETITE [None]
  - GROWTH RETARDATION [None]
  - HEPATITIS [None]
  - MALAISE [None]
  - MILK ALLERGY [None]
  - NAUSEA [None]
  - POOR WEIGHT GAIN NEONATAL [None]
  - TRANSAMINASES INCREASED [None]
